FAERS Safety Report 4780961-1 (Version None)
Quarter: 2005Q3

REPORT INFORMATION
  Report Type: 
  Country: None (occurrence: None)
  Receive Date: 20050926
  Receipt Date: 20050926
  Transmission Date: 20060218
  Serious: No
  Sender: FDA-Public Use
  Company Number: None

PATIENT
  Age: 85 Year
  Sex: Female
  Weight: 58.9676 kg

DRUGS (2)
  1. MS CONTIN [Suspect]
  2. MORPHINE [Suspect]

REACTIONS (1)
  - MEDICATION ERROR [None]
